FAERS Safety Report 7397431-7 (Version None)
Quarter: 2011Q2

REPORT INFORMATION
  Report Type: 
  Country: None (occurrence: None)
  Receive Date: 20110406
  Receipt Date: 20110328
  Transmission Date: 20111010
  Serious: Yes (Hospitalization)
  Sender: FDA-Public Use
  Company Number: US-ASTRAZENECA-2010SE42253

PATIENT
  Age: 61 Year
  Sex: Female

DRUGS (43)
  1. AMOXICILLIN [Concomitant]
  2. AUGMENTIN [Concomitant]
  3. COZAAR [Concomitant]
  4. EYTHROMYCIN BASE [Concomitant]
  5. FEDENE [Concomitant]
  6. AXID [Concomitant]
  7. DIOVAN [Concomitant]
  8. TALWIN [Concomitant]
  9. TORADOL [Concomitant]
  10. TENORMIN [Suspect]
     Route: 065
  11. NEXIUM [Suspect]
     Route: 048
  12. PRILOSEC [Suspect]
     Route: 048
  13. ADVIL LIQUI-GELS [Concomitant]
  14. DAYPRO [Concomitant]
  15. PERCODAN-DEMI [Concomitant]
  16. ULTHRAM [Concomitant]
  17. DARVOCET [Concomitant]
  18. IBUPROFEN AND ALL IB PRODUCTS [Concomitant]
  19. LODINE [Concomitant]
  20. LEVAQUIN [Concomitant]
  21. PENICILLIN [Concomitant]
  22. PEPCID [Concomitant]
  23. PERCOCEL [Concomitant]
  24. PREVACID [Concomitant]
  25. TAGAMENT [Concomitant]
  26. ZIAC (GENERIC) [Concomitant]
  27. BETADINE [Concomitant]
  28. COMPAZINE [Concomitant]
  29. DOLOBID [Concomitant]
  30. NITROGLYCERIN [Concomitant]
  31. VASOTEC [Concomitant]
  32. CRESTOR [Suspect]
     Route: 048
  33. AMBESOL [Concomitant]
  34. ALCOHOL [Concomitant]
  35. ASCIPTIN [Concomitant]
  36. DEMEROL [Concomitant]
  37. HYDROCHLOROTHIAZIDE [Concomitant]
  38. MOTRIN [Concomitant]
  39. PROVERA INJECTIONS [Concomitant]
  40. APPLES/APPLE CIDER [Concomitant]
  41. CODEINE AND ALL CODEINE DERIVATIVES [Concomitant]
  42. DARVON [Concomitant]
  43. PROPOLSIDE [Concomitant]

REACTIONS (8)
  - OSTEONECROSIS OF JAW [None]
  - KNEE OPERATION [None]
  - MUSCLE SPASMS [None]
  - TOOTH EXTRACTION [None]
  - DRUG EFFECT DECREASED [None]
  - GASTROOESOPHAGEAL REFLUX DISEASE [None]
  - HEADACHE [None]
  - NAUSEA [None]
